FAERS Safety Report 18180750 (Version 1)
Quarter: 2020Q3

REPORT INFORMATION
  Report Type: Spontaneous
  Country: US (occurrence: US)
  Receive Date: 20200821
  Receipt Date: 20200821
  Transmission Date: 20201103
  Serious: Yes (Other)
  Sender: FDA-Public Use
  Company Number: None

PATIENT
  Age: 89 Year
  Sex: Female
  Weight: 74.25 kg

DRUGS (3)
  1. LOSARTAN 50 MG [Concomitant]
     Active Substance: LOSARTAN
     Dates: start: 20160802, end: 20200821
  2. VERZENIO [Suspect]
     Active Substance: ABEMACICLIB
     Indication: BREAST CANCER
     Route: 048
     Dates: start: 20200723, end: 20200729
  3. METHENAMINE [Concomitant]
     Active Substance: METHENAMINE
     Dates: start: 20200409, end: 20200821

REACTIONS (3)
  - Adverse drug reaction [None]
  - Fatigue [None]
  - Lethargy [None]

NARRATIVE: CASE EVENT DATE: 20200724
